FAERS Safety Report 20349699 (Version 1)
Quarter: 2022Q1

REPORT INFORMATION
  Report Type: Spontaneous
  Country: FR (occurrence: FR)
  Receive Date: 20220119
  Receipt Date: 20220119
  Transmission Date: 20220423
  Serious: Yes (Hospitalization)
  Sender: FDA-Public Use
  Company Number: None

PATIENT
  Age: 23 Year
  Sex: Male

DRUGS (4)
  1. AMLODIPINE [Suspect]
     Active Substance: AMLODIPINE BESYLATE
     Indication: Product used for unknown indication
     Dosage: 5 MILLIGRAM DAILY;  AMLODIPINE (BESILATE D) , THERAPY START DATE : ASKU
     Route: 048
  2. IRBESARTAN [Suspect]
     Active Substance: IRBESARTAN
     Indication: Product used for unknown indication
     Dosage: 450 MILLIGRAM DAILY; 150MG 3 TIMES A DAY , THERAPY START DATE : ASKU
     Route: 048
  3. RABEPRAZOLE [Suspect]
     Active Substance: RABEPRAZOLE
     Indication: Product used for unknown indication
     Dosage: 10 MILLIGRAM DAILY; THERAPY START DATE : ASKU
     Route: 048
  4. IDEBENONE [Suspect]
     Active Substance: IDEBENONE
     Indication: Product used for unknown indication
     Dosage: 450 MILLIGRAM DAILY; 150MG 3 TIMES A DAY
     Route: 048

REACTIONS (1)
  - Cholestasis [Unknown]

NARRATIVE: CASE EVENT DATE: 20210701
